FAERS Safety Report 14304451 (Version 1)
Quarter: 2017Q4

REPORT INFORMATION
  Report Type: Spontaneous
  Country: JP (occurrence: JP)
  Receive Date: 20171219
  Receipt Date: 20171219
  Transmission Date: 20180321
  Serious: Yes (Other)
  Sender: FDA-Public Use
  Company Number: JP-OTSUKA-03100-JPN-06-0556

PATIENT
  Age: 36 Year
  Sex: Female
  Weight: 44 kg

DRUGS (18)
  1. ABILIFY [Suspect]
     Active Substance: ARIPIPRAZOLE
     Dosage: 3 MG, BID
     Route: 048
     Dates: start: 20061005, end: 20061011
  2. DEPAS [Concomitant]
     Active Substance: ETIZOLAM
     Dosage: 1 MG, QD
     Route: 048
     Dates: start: 20061005, end: 20061018
  3. SENNA [Concomitant]
     Active Substance: SENNA LEAF\SENNOSIDES\SENNOSIDES A AND B
     Indication: CONSTIPATION
     Dosage: 12 MG, UNK
     Route: 048
     Dates: start: 20060927
  4. TASMOLIN [Concomitant]
     Active Substance: BIPERIDEN
     Dosage: 1 MG, BID
     Route: 048
     Dates: start: 20060927, end: 20061019
  5. LEVOTOMIN [Concomitant]
     Active Substance: LEVOMEPROMAZINE
     Dosage: 5 MG, QD
     Route: 048
     Dates: start: 20061003, end: 20061025
  6. BIPERIDEN HCL [Concomitant]
     Active Substance: BIPERIDEN HYDROCHLORIDE
     Indication: EXTRAPYRAMIDAL DISORDER
     Dosage: 2 MG, UNK
     Route: 048
     Dates: start: 20060927, end: 20061019
  7. PROMETHAZINE HCL [Concomitant]
     Active Substance: PROMETHAZINE HYDROCHLORIDE
     Indication: INSOMNIA
     Dosage: 25 MG, UNK
     Dates: start: 20061019
  8. RISPERDAL [Concomitant]
     Active Substance: RISPERIDONE
     Dosage: 3 MG, BID
     Route: 048
     Dates: start: 20061005, end: 20061011
  9. FLUNITRAZEPAM [Concomitant]
     Active Substance: FLUNITRAZEPAM
     Dosage: 2 MG, QD
     Route: 048
     Dates: start: 20060927
  10. RISPERDAL [Concomitant]
     Active Substance: RISPERIDONE
     Dosage: 3 MG, TID
     Route: 048
     Dates: start: 20060927, end: 20061004
  11. SENNOSIDE [Concomitant]
     Active Substance: SENNOSIDES
     Dosage: 12 MG, QD
     Route: 048
     Dates: start: 20060927
  12. FLUNITRAZEPAM [Concomitant]
     Active Substance: FLUNITRAZEPAM
     Indication: INSOMNIA
     Dosage: 2 MG, UNK
     Route: 048
     Dates: start: 20060927
  13. LEVOMEPROMAZINE [Concomitant]
     Active Substance: LEVOMEPROMAZINE
     Indication: SCHIZOPHRENIA
     Dosage: 10 MG SEP/2006-02/OCT/2006; 03/OCT/2006-UNKNOWN 5 MG.
     Route: 048
     Dates: start: 200609, end: 20061025
  14. LEVOTOMIN [Concomitant]
     Active Substance: LEVOMEPROMAZINE
     Dosage: 10 MG, QD
     Route: 048
     Dates: start: 200609, end: 20061002
  15. RISPERDAL [Concomitant]
     Active Substance: RISPERIDONE
     Dosage: 1 MG, BID
     Route: 048
     Dates: start: 20061012, end: 20061019
  16. HIBERNA [Concomitant]
     Active Substance: PROMETHAZINE HYDROCHLORIDE
     Dosage: 25 MG, QD
     Route: 048
     Dates: start: 20061019
  17. RISPERIDONE. [Concomitant]
     Active Substance: RISPERIDONE
     Indication: SCHIZOPHRENIA
     Dosage: DOSE 9 MG, DECREASED TO 6MG ON 5-OCT-06, DECREASED TO 2 MG ON 12-OCT-06
     Route: 048
     Dates: start: 200609, end: 20061010
  18. ABILIFY [Suspect]
     Active Substance: ARIPIPRAZOLE
     Dosage: 6 MG, BID
     Route: 048
     Dates: start: 20061012, end: 20061025

REACTIONS (1)
  - Generalised tonic-clonic seizure [Recovered/Resolved]

NARRATIVE: CASE EVENT DATE: 20061025
